FAERS Safety Report 6144577-7 (Version None)
Quarter: 2009Q2

REPORT INFORMATION
  Report Type: 
  Country: None (occurrence: None)
  Receive Date: 20090406
  Receipt Date: 20090325
  Transmission Date: 20091009
  Serious: Yes (Hospitalization)
  Sender: FDA-Public Use
  Company Number: US-WATSON-2009-02068

PATIENT
  Age: 68 Year
  Sex: Male

DRUGS (2)
  1. PROPAFENONE (WATSON LABORATORIES) [Suspect]
     Indication: ATRIAL FIBRILLATION
     Dosage: 225 MG, TID
     Route: 048
     Dates: start: 20090222, end: 20090311
  2. PROPAFENONE (WATSON LABORATORIES) [Suspect]
     Dosage: UNK
     Dates: start: 19990101, end: 20090211

REACTIONS (6)
  - CEREBELLAR INFARCTION [None]
  - CEREBRAL ISCHAEMIA [None]
  - CEREBRAL THROMBOSIS [None]
  - CEREBROVASCULAR ACCIDENT [None]
  - DRUG INEFFECTIVE [None]
  - LACUNAR INFARCTION [None]
